FAERS Safety Report 6378102-2 (Version None)
Quarter: 2009Q3

REPORT INFORMATION
  Report Type: 
  Country: None (occurrence: None)
  Receive Date: 20090925
  Receipt Date: 20090922
  Transmission Date: 20100115
  Serious: Yes (Hospitalization)
  Sender: FDA-Public Use
  Company Number: US-RB-020655-09

PATIENT
  Age: 63 Year
  Sex: Female

DRUGS (2)
  1. SUBOXONE [Suspect]
     Dosage: TOOK 2-3 TABLETS/DAILY
     Route: 060
     Dates: start: 20060101, end: 20070801
  2. SUBOXONE [Suspect]
     Indication: PAIN
     Dosage: TAKES 2-3 TABLETS DAILY
     Route: 060
     Dates: start: 20081201

REACTIONS (8)
  - CARDIAC ARREST [None]
  - CEREBROVASCULAR ACCIDENT [None]
  - DRUG DEPENDENCE [None]
  - PHARYNGITIS STREPTOCOCCAL [None]
  - SEPTIC SHOCK [None]
  - STRESS FRACTURE [None]
  - THROMBOSIS [None]
  - TONGUE DISCOLOURATION [None]
